FAERS Safety Report 8728080 (Version 2)
Quarter: 2012Q4

REPORT INFORMATION
  Report Type: 
  Country: US (occurrence: US)
  Receive Date: 20120817
  Receipt Date: 20120831
  Transmission Date: 20130627
  Serious: Yes (Hospitalization)
  Sender: FDA-Public Use
  Company Number: US-BIOGENIDEC-2012BI029744

PATIENT
  Age: 60 Year
  Sex: Female

DRUGS (2)
  1. AVONEX [Suspect]
     Indication: MULTIPLE SCLEROSIS
     Route: 030
     Dates: start: 20030501
  2. PERCOCET [Concomitant]
     Dates: start: 2012

REACTIONS (3)
  - Uterine leiomyoma [Not Recovered/Not Resolved]
  - Malaise [Unknown]
  - Cognitive disorder [Recovered/Resolved]
